FAERS Safety Report 20810091 (Version 1)
Quarter: 2022Q2

REPORT INFORMATION
  Report Type: Spontaneous
  Country: US (occurrence: US)
  Receive Date: 20220510
  Receipt Date: 20220510
  Transmission Date: 20220721
  Serious: No
  Sender: FDA-Public Use
  Company Number: US-OYSTER POINT PHARMA, INC.-2022OYS00326

PATIENT
  Age: 67 Year
  Sex: Female
  Weight: 62.585 kg

DRUGS (9)
  1. TYRVAYA [Suspect]
     Active Substance: VARENICLINE TARTRATE
     Indication: Meibomian gland dysfunction
     Dosage: 0.06 MG (1 SPRAY IN EACH NOSTRIL), 2X/DAY (BETWEEN 9-10 AM AND 9-10 PM)
     Route: 045
     Dates: start: 20220211
  2. HYDROCHLOROTHIAZIDE [Concomitant]
     Active Substance: HYDROCHLOROTHIAZIDE
  3. KEPPRA [Concomitant]
     Active Substance: LEVETIRACETAM
  4. ASPIRIN [Concomitant]
     Active Substance: ASPIRIN
  5. PEPCID [Concomitant]
     Active Substance: FAMOTIDINE
  6. FISH OIL [Concomitant]
     Active Substance: FISH OIL
  7. CALCIUM [Concomitant]
     Active Substance: CALCIUM
  8. VITAMIN D [Concomitant]
     Active Substance: VITAMIN D NOS
  9. VITAMINS [Concomitant]
     Active Substance: VITAMINS

REACTIONS (7)
  - Nasal congestion [Recovering/Resolving]
  - Paranasal sinus discomfort [Recovered/Resolved]
  - Intranasal paraesthesia [Recovered/Resolved]
  - Paraesthesia oral [Recovered/Resolved]
  - Cough [Recovering/Resolving]
  - Sneezing [Recovering/Resolving]
  - Drug ineffective for unapproved indication [Not Recovered/Not Resolved]

NARRATIVE: CASE EVENT DATE: 20220201
